FAERS Safety Report 5120610-6 (Version None)
Quarter: 2006Q3

REPORT INFORMATION
  Report Type: 
  Country: None (occurrence: None)
  Receive Date: 20060928
  Receipt Date: 20060925
  Transmission Date: 20061208
  Serious: Yes (Hospitalization)
  Sender: FDA-Public Use
  Company Number: 2006-05088

PATIENT
  Age: 39 Year
  Sex: Female

DRUGS (3)
  1. TRELSTAR DEPOT [Suspect]
     Indication: OVARIAN FAILURE
     Dates: start: 20050801
  2. TAMOXIFEN CITRATE [Concomitant]
  3. CHEMOTHERAPY UNSPECIFIED [Concomitant]

REACTIONS (3)
  - CHEST PAIN [None]
  - HYPERTENSION [None]
  - TACHYCARDIA [None]
